FAERS Safety Report 13965536 (Version 2)
Quarter: 2017Q3

REPORT INFORMATION
  Report Type: Spontaneous
  Country: CR (occurrence: CR)
  Receive Date: 20170913
  Receipt Date: 20170920
  Transmission Date: 20171128
  Serious: Yes (Hospitalization, Other)
  Sender: FDA-Public Use
  Company Number: CR-PFIZER INC-2017392468

PATIENT
  Age: 16 Year
  Sex: Female

DRUGS (7)
  1. ALTRULINE [Suspect]
     Active Substance: SERTRALINE HYDROCHLORIDE
     Indication: DEPRESSION
     Dosage: 75 MG, UNK
     Route: 048
  2. ALTRULINE [Suspect]
     Active Substance: SERTRALINE HYDROCHLORIDE
     Dosage: 100 MG, 1X/DAY
     Route: 048
     Dates: start: 201611
  3. ANSIOLIT [Concomitant]
     Dosage: 0.5 DF, 1X/DAY
     Dates: start: 201703, end: 2017
  4. GRAVOL [Concomitant]
     Active Substance: DIMENHYDRINATE
     Dosage: 50 MG, 1X/DAY
     Dates: start: 201703, end: 2017
  5. ALTRULINE [Suspect]
     Active Substance: SERTRALINE HYDROCHLORIDE
     Dosage: 500 MG, UNK
     Dates: start: 20170820, end: 20170820
  6. DORMICUM /00036201/ [Concomitant]
     Active Substance: NITRAZEPAM
     Dosage: 0.5 DF, 1X/DAY
     Dates: start: 201703, end: 2017
  7. DORMICUM /00036201/ [Concomitant]
     Active Substance: NITRAZEPAM
     Dosage: 4 DF, UNK
     Dates: start: 20170820, end: 20170820

REACTIONS (4)
  - Hallucination [Recovered/Resolved]
  - Suicide attempt [Recovered/Resolved]
  - Product use in unapproved indication [Unknown]
  - Overdose [Recovered/Resolved]

NARRATIVE: CASE EVENT DATE: 20170820
